FAERS Safety Report 7323265-5 (Version None)
Quarter: 2011Q1

REPORT INFORMATION
  Report Type: 
  Country: None (occurrence: None)
  Receive Date: 20110301
  Receipt Date: 20110223
  Transmission Date: 20110831
  Serious: Yes (Other)
  Sender: FDA-Public Use
  Company Number: US-PFIZER INC-2011039613

PATIENT
  Sex: Male

DRUGS (1)
  1. CHANTIX [Suspect]
     Dosage: UNK
     Dates: start: 20090101

REACTIONS (5)
  - RIB FRACTURE [None]
  - ROAD TRAFFIC ACCIDENT [None]
  - HEAD INJURY [None]
  - LOSS OF CONSCIOUSNESS [None]
  - COGNITIVE DISORDER [None]
